FAERS Safety Report 9366579 (Version 2)
Quarter: 2013Q3

REPORT INFORMATION
  Report Type: Spontaneous
  Country: US (occurrence: US)
  Receive Date: 20130625
  Receipt Date: 20130701
  Transmission Date: 20140515
  Serious: Yes (Other)
  Sender: FDA-Public Use
  Company Number: US-PFIZER INC-2013187631

PATIENT
  Age: 66 Year
  Sex: Male

DRUGS (6)
  1. AMLODIPINE BESILATE [Suspect]
     Dosage: 5 MG, UNK
     Route: 065
  2. ATENOLOL [Suspect]
     Dosage: 12.5 MG, UNK
     Route: 065
  3. DOXAZOSIN MESILATE [Suspect]
     Dosage: 2 MG, UNK
     Route: 065
  4. ISOSORBIDE MONONITRATE [Suspect]
     Dosage: 60 MG, UNK
     Route: 065
  5. ASPIRIN [Suspect]
     Dosage: 81 MG, UNK
     Route: 065
  6. LOVASTATIN [Suspect]
     Dosage: 20 MG, UNK
     Route: 065

REACTIONS (8)
  - Sleep apnoea syndrome [Recovered/Resolved]
  - Brain compression [Unknown]
  - Somnolence [Unknown]
  - Dyspnoea exertional [Unknown]
  - Abnormal dreams [Not Recovered/Not Resolved]
  - Tongue biting [Unknown]
  - Nasal turbinate hypertrophy [Unknown]
  - Laceration [Unknown]
